FAERS Safety Report 6236718-8 (Version None)
Quarter: 2009Q2

REPORT INFORMATION
  Report Type: 
  Country: None (occurrence: None)
  Receive Date: 20090619
  Receipt Date: 20090608
  Transmission Date: 20091009
  Serious: Yes (Other)
  Sender: FDA-Public Use
  Company Number: PHHY2009JP22450

PATIENT

DRUGS (10)
  1. TEGRETOL [Suspect]
     Indication: EPILEPSY
     Dosage: 400 MG
     Route: 048
     Dates: end: 20080821
  2. TEGRETOL [Suspect]
     Dosage: 300 MG
     Route: 048
     Dates: start: 20080822, end: 20090108
  3. TEGRETOL [Suspect]
     Dosage: 200MG
     Route: 048
     Dates: start: 20090109, end: 20090326
  4. TEGRETOL [Suspect]
     Dosage: 300 MG
     Route: 048
     Dates: start: 20090327, end: 20090501
  5. DEPAKENE [Concomitant]
     Route: 048
  6. MYSTAN AZWELL [Concomitant]
     Route: 048
  7. MAGLAX [Concomitant]
     Route: 048
  8. XALATAN [Concomitant]
  9. TIMOLOL MALEATE [Concomitant]
  10. METHYLCOBALAMIN [Concomitant]

REACTIONS (8)
  - CONVULSION [None]
  - DIZZINESS [None]
  - DYSARTHRIA [None]
  - GLAUCOMA [None]
  - HEADACHE [None]
  - SALIVARY HYPERSECRETION [None]
  - SOMNOLENCE [None]
  - TREATMENT NONCOMPLIANCE [None]
